FAERS Safety Report 9167055 (Version 2)
Quarter: 2013Q2

REPORT INFORMATION
  Report Type: Spontaneous
  Country: US (occurrence: US)
  Receive Date: 20130318
  Receipt Date: 20130528
  Transmission Date: 20140414
  Serious: No
  Sender: FDA-Public Use
  Company Number: US-009507513-1303USA005977

PATIENT
  Age: 20 Year
  Sex: Female
  Weight: 52.15 kg

DRUGS (3)
  1. IMPLANON [Suspect]
     Indication: MIGRAINE
     Dosage: 1 DF, EVERY 3 YEARS
     Route: 059
     Dates: start: 20120817
  2. IMPLANON [Suspect]
     Indication: MENSTRUAL DISORDER
  3. LEXAPRO [Concomitant]

REACTIONS (4)
  - Anaemia [Unknown]
  - Metrorrhagia [Unknown]
  - Drug ineffective [Unknown]
  - Off label use [Unknown]
